FAERS Safety Report 20629819 (Version 8)
Quarter: 2025Q4

REPORT INFORMATION
  Report Type: Report from Study
  Country: CA (occurrence: None)
  Receive Date: 20220324
  Receipt Date: 20251013
  Transmission Date: 20260118
  Serious: Yes (Life-Threatening, Hospitalization, Other)
  Sender: ORION
  Company Number: CA-PFIZER INC-2018477063

PATIENT
  Age: 61 Year
  Sex: Female
  Weight: 69 kg

DRUGS (140)
  1. METHOTREXATE [Suspect]
     Active Substance: METHOTREXATE
     Indication: Product used for unknown indication
  2. ALTACE [Suspect]
     Active Substance: RAMIPRIL
     Indication: Product used for unknown indication
  3. ALTACE [Suspect]
     Active Substance: RAMIPRIL
  4. AMLODIPINE BESYLATE [Suspect]
     Active Substance: AMLODIPINE BESYLATE
     Indication: Product used for unknown indication
  5. AMLODIPINE BESYLATE [Suspect]
     Active Substance: AMLODIPINE BESYLATE
  6. METHYLPREDNISOLONE SODIUM SUCCINATE [Suspect]
     Active Substance: METHYLPREDNISOLONE SODIUM SUCCINATE
     Indication: Premedication
  7. METHYLPREDNISOLONE SODIUM SUCCINATE [Suspect]
     Active Substance: METHYLPREDNISOLONE SODIUM SUCCINATE
  8. MORPHINE SULFATE [Suspect]
     Active Substance: MORPHINE SULFATE
     Indication: Product used for unknown indication
  9. MORPHINE SULFATE [Suspect]
     Active Substance: MORPHINE SULFATE
  10. NEXIUM [Suspect]
     Active Substance: ESOMEPRAZOLE MAGNESIUM
     Indication: Product used for unknown indication
  11. NEXIUM 24HR [Suspect]
     Active Substance: ESOMEPRAZOLE MAGNESIUM
     Indication: Product used for unknown indication
  12. NEXIUM 24HR [Suspect]
     Active Substance: ESOMEPRAZOLE MAGNESIUM
  13. PROCHLORPERAZINE [Suspect]
     Active Substance: PROCHLORPERAZINE
     Indication: Vomiting
  14. PROCHLORPERAZINE [Suspect]
     Active Substance: PROCHLORPERAZINE
  15. GRAVOL [Suspect]
     Active Substance: DIMENHYDRINATE
     Indication: Premedication
  16. GRAVOL [Suspect]
     Active Substance: DIMENHYDRINATE
  17. GRAVOL [Suspect]
     Active Substance: DIMENHYDRINATE
  18. GRAVOL [Suspect]
     Active Substance: DIMENHYDRINATE
  19. GRAVOL [Suspect]
     Active Substance: DIMENHYDRINATE
  20. RITUXAN [Suspect]
     Active Substance: RITUXIMAB
     Indication: Sjogren^s syndrome
  21. RITUXAN [Suspect]
     Active Substance: RITUXIMAB
     Indication: Rheumatoid arthritis
  22. RITUXAN [Suspect]
     Active Substance: RITUXIMAB
  23. RITUXAN [Suspect]
     Active Substance: RITUXIMAB
  24. RITUXAN [Suspect]
     Active Substance: RITUXIMAB
  25. RITUXAN [Suspect]
     Active Substance: RITUXIMAB
  26. LISINOPRIL [Suspect]
     Active Substance: LISINOPRIL
     Indication: Hypertension
  27. LISINOPRIL [Suspect]
     Active Substance: LISINOPRIL
  28. ACETAMINOPHEN [Suspect]
     Active Substance: ACETAMINOPHEN
     Indication: Product used for unknown indication
  29. ATACAND [Suspect]
     Active Substance: CANDESARTAN CILEXETIL
     Indication: Hypertension
  30. GLICLAZIDE [Suspect]
     Active Substance: GLICLAZIDE
     Indication: Diabetes mellitus
  31. GLICLAZIDE [Suspect]
     Active Substance: GLICLAZIDE
     Indication: Blood pressure abnormal
  32. GLICLAZIDE [Suspect]
     Active Substance: GLICLAZIDE
  33. GLICLAZIDE [Suspect]
     Active Substance: GLICLAZIDE
  34. GLICLAZIDE [Suspect]
     Active Substance: GLICLAZIDE
  35. GLICLAZIDE [Suspect]
     Active Substance: GLICLAZIDE
  36. GLICLAZIDE [Suspect]
     Active Substance: GLICLAZIDE
  37. GLICLAZIDE [Suspect]
     Active Substance: GLICLAZIDE
  38. DIPHENHYDRAMINE HYDROCHLORIDE [Suspect]
     Active Substance: DIPHENHYDRAMINE HYDROCHLORIDE
     Indication: Premedication
  39. PREDNISONE [Suspect]
     Active Substance: PREDNISONE
     Indication: Product used for unknown indication
  40. ACETAMINOPHEN [Suspect]
     Active Substance: ACETAMINOPHEN
     Indication: Product used for unknown indication
  41. ESOMEPRAZOLE MAGNESIUM\NAPROXEN [Suspect]
     Active Substance: ESOMEPRAZOLE MAGNESIUM\NAPROXEN
     Indication: Product used for unknown indication
  42. PROCHLORPERAZINE MALEATE [Suspect]
     Active Substance: PROCHLORPERAZINE MALEATE
     Indication: Vomiting
  43. SYNTHROID [Suspect]
     Active Substance: LEVOTHYROXINE SODIUM
     Indication: Product used for unknown indication
  44. SYNTHROID [Suspect]
     Active Substance: LEVOTHYROXINE SODIUM
  45. NEXIUM I.V. [Suspect]
     Active Substance: ESOMEPRAZOLE SODIUM
     Indication: Product used for unknown indication
  46. NEXIUM I.V. [Suspect]
     Active Substance: ESOMEPRAZOLE SODIUM
  47. NEXIUM I.V. [Suspect]
     Active Substance: ESOMEPRAZOLE SODIUM
  48. CANDESARTAN CILEXETIL [Suspect]
     Active Substance: CANDESARTAN CILEXETIL
     Indication: Hypertension
  49. GLICLAZIDE [Suspect]
     Active Substance: GLICLAZIDE
     Indication: Diabetes mellitus
  50. GLICLAZIDE [Suspect]
     Active Substance: GLICLAZIDE
     Indication: Blood pressure abnormal
  51. ZOFRAN [Suspect]
     Active Substance: ONDANSETRON HYDROCHLORIDE
     Indication: Product used for unknown indication
  52. ZOFRAN [Suspect]
     Active Substance: ONDANSETRON HYDROCHLORIDE
  53. LEVOTHYROXINE SODIUM [Suspect]
     Active Substance: LEVOTHYROXINE SODIUM
     Indication: Product used for unknown indication
  54. METFORMIN HYDROCHLORIDE [Suspect]
     Active Substance: METFORMIN HYDROCHLORIDE
     Indication: Product used for unknown indication
  55. METFORMIN HYDROCHLORIDE [Suspect]
     Active Substance: METFORMIN HYDROCHLORIDE
  56. LIPITOR [Suspect]
     Active Substance: ATORVASTATIN CALCIUM
     Indication: Product used for unknown indication
  57. ALISKIREN HEMIFUMARATE [Suspect]
     Active Substance: ALISKIREN HEMIFUMARATE
     Indication: Microalbuminuria
  58. ALISKIREN HEMIFUMARATE [Suspect]
     Active Substance: ALISKIREN HEMIFUMARATE
     Indication: Hypertension
  59. ALISKIREN HEMIFUMARATE [Suspect]
     Active Substance: ALISKIREN HEMIFUMARATE
  60. ALISKIREN HEMIFUMARATE [Suspect]
     Active Substance: ALISKIREN HEMIFUMARATE
  61. ALISKIREN HEMIFUMARATE [Suspect]
     Active Substance: ALISKIREN HEMIFUMARATE
  62. ALISKIREN HEMIFUMARATE [Suspect]
     Active Substance: ALISKIREN HEMIFUMARATE
  63. ALISKIREN HEMIFUMARATE [Suspect]
     Active Substance: ALISKIREN HEMIFUMARATE
  64. ALISKIREN HEMIFUMARATE [Suspect]
     Active Substance: ALISKIREN HEMIFUMARATE
  65. ALISKIREN HEMIFUMARATE [Suspect]
     Active Substance: ALISKIREN HEMIFUMARATE
  66. CALCIUM CARBONATE [Suspect]
     Active Substance: CALCIUM CARBONATE
     Indication: Product used for unknown indication
  67. ALISKIREN [Suspect]
     Active Substance: ALISKIREN
     Indication: Product used for unknown indication
  68. COSENTYX [Suspect]
     Active Substance: SECUKINUMAB
     Indication: Psoriatic arthropathy
  69. COSENTYX [Suspect]
     Active Substance: SECUKINUMAB
     Indication: Psoriasis
  70. COSENTYX [Suspect]
     Active Substance: SECUKINUMAB
     Indication: Hypertension
  71. COSENTYX [Suspect]
     Active Substance: SECUKINUMAB
  72. COSENTYX [Suspect]
     Active Substance: SECUKINUMAB
  73. COSENTYX [Suspect]
     Active Substance: SECUKINUMAB
  74. COSENTYX [Suspect]
     Active Substance: SECUKINUMAB
  75. COSENTYX [Suspect]
     Active Substance: SECUKINUMAB
  76. COSENTYX [Suspect]
     Active Substance: SECUKINUMAB
  77. ERGOCALCIFEROL [Suspect]
     Active Substance: ERGOCALCIFEROL
     Indication: Product used for unknown indication
  78. JANUVIA [Suspect]
     Active Substance: SITAGLIPTIN PHOSPHATE
     Indication: Product used for unknown indication
  79. BISOPROLOL [Suspect]
     Active Substance: BISOPROLOL
     Indication: Product used for unknown indication
  80. IRBESARTAN [Suspect]
     Active Substance: IRBESARTAN
     Indication: Hypertension
  81. IRBESARTAN [Suspect]
     Active Substance: IRBESARTAN
  82. PANTOPRAZOLE [Suspect]
     Active Substance: PANTOPRAZOLE
     Indication: Product used for unknown indication
  83. RITUXIMAB [Suspect]
     Active Substance: RITUXIMAB
     Indication: Sjogren^s syndrome
  84. RITUXIMAB [Suspect]
     Active Substance: RITUXIMAB
  85. RITUXIMAB [Suspect]
     Active Substance: RITUXIMAB
  86. RITUXIMAB [Suspect]
     Active Substance: RITUXIMAB
  87. RITUXIMAB [Suspect]
     Active Substance: RITUXIMAB
  88. RITUXIMAB [Suspect]
     Active Substance: RITUXIMAB
  89. RITUXIMAB [Suspect]
     Active Substance: RITUXIMAB
  90. OMEPRAZOLE [Suspect]
     Active Substance: OMEPRAZOLE
     Indication: Product used for unknown indication
  91. RAMIPRIL [Suspect]
     Active Substance: RAMIPRIL
     Indication: Product used for unknown indication
  92. PEDIAPRED [Suspect]
     Active Substance: PREDNISOLONE SODIUM PHOSPHATE
     Indication: Product used for unknown indication
  93. ASPIRIN [Suspect]
     Active Substance: ASPIRIN
     Indication: Product used for unknown indication
  94. ZOLPIDEM [Suspect]
     Active Substance: ZOLPIDEM TARTRATE
     Indication: Product used for unknown indication
  95. ONDANSETRON [Suspect]
     Active Substance: ONDANSETRON
     Indication: Product used for unknown indication
  96. TUMS ULTRA [Suspect]
     Active Substance: CALCIUM CARBONATE
     Indication: Product used for unknown indication
  97. SITAGLIPTIN PHOSPHATE [Suspect]
     Active Substance: SITAGLIPTIN PHOSPHATE
     Indication: Product used for unknown indication
  98. MORPHINE HYDROCHLORIDE [Suspect]
     Active Substance: MORPHINE HYDROCHLORIDE
     Indication: Product used for unknown indication
  99. HYDROCHLOROTHIAZIDE [Concomitant]
     Active Substance: HYDROCHLOROTHIAZIDE
  100. HYDROCHLOROTHIAZIDE [Concomitant]
     Active Substance: HYDROCHLOROTHIAZIDE
  101. DEPO-MEDROL [Concomitant]
     Active Substance: METHYLPREDNISOLONE ACETATE
     Dosage: SUSPENSION INTRAARTICULAR
  102. DOMPERIDONE [Concomitant]
     Active Substance: DOMPERIDONE
  103. DOMPERIDONE [Concomitant]
     Active Substance: DOMPERIDONE
  104. LEVOTHYROXINE [Concomitant]
     Active Substance: LEVOTHYROXINE
  105. LEVOTHYROXINE [Concomitant]
     Active Substance: LEVOTHYROXINE
  106. EZETIMIBE [Concomitant]
     Active Substance: EZETIMIBE
  107. EZETIMIBE [Concomitant]
     Active Substance: EZETIMIBE
  108. HUMALOG [Concomitant]
     Active Substance: INSULIN LISPRO
  109. HUMALOG [Concomitant]
     Active Substance: INSULIN LISPRO
  110. JANUVIA [Concomitant]
     Active Substance: SITAGLIPTIN PHOSPHATE
  111. LANTUS [Concomitant]
     Active Substance: INSULIN GLARGINE
  112. LANTUS [Concomitant]
     Active Substance: INSULIN GLARGINE
  113. LEVEMIR [Concomitant]
     Active Substance: INSULIN DETEMIR
  114. LYRICA [Concomitant]
     Active Substance: PREGABALIN
  115. LYRICA [Concomitant]
     Active Substance: PREGABALIN
  116. PANTOPRAZOLE SODIUM [Concomitant]
     Active Substance: PANTOPRAZOLE SODIUM
  117. PANTOPRAZOLE SODIUM [Concomitant]
     Active Substance: PANTOPRAZOLE SODIUM
  118. ROSUVASTATIN CALCIUM [Concomitant]
     Active Substance: ROSUVASTATIN CALCIUM
  119. ROSUVASTATIN CALCIUM [Concomitant]
     Active Substance: ROSUVASTATIN CALCIUM
  120. TYLENOL [Concomitant]
     Active Substance: ACETAMINOPHEN
  121. TYLENOL [Concomitant]
     Active Substance: ACETAMINOPHEN
  122. ACITRETIN [Concomitant]
     Active Substance: ACITRETIN
  123. AVAPRO [Concomitant]
     Active Substance: IRBESARTAN
  124. COAL TAR [Concomitant]
     Active Substance: COAL TAR
  125. CYMBALTA [Concomitant]
     Active Substance: DULOXETINE HYDROCHLORIDE
  126. DOVONEX [Concomitant]
     Active Substance: CALCIPOTRIENE
  127. ESOMEPRAZOLE [Concomitant]
     Active Substance: ESOMEPRAZOLE
  128. PANTOPRAZOLE MAGNESIUM [Concomitant]
     Active Substance: PANTOPRAZOLE MAGNESIUM
  129. TELMISARTAN [Concomitant]
     Active Substance: TELMISARTAN
  130. STELARA [Concomitant]
     Active Substance: USTEKINUMAB
  131. SYNTHROID [Concomitant]
     Active Substance: LEVOTHYROXINE SODIUM
  132. SITAGLIPTIN [Concomitant]
     Active Substance: SITAGLIPTIN
  133. AMEVIVE [Concomitant]
     Active Substance: ALEFACEPT
  134. METHYLPREDNISOLONE [Concomitant]
     Active Substance: METHYLPREDNISOLONE
  135. PANTOPRAZOLE [Concomitant]
     Active Substance: PANTOPRAZOLE
  136. CYANOCOBALAMIN [Concomitant]
     Active Substance: CYANOCOBALAMIN
  137. ASCORBIC ACID [Concomitant]
     Active Substance: ASCORBIC ACID
  138. GLUCOPHAGE [Concomitant]
     Active Substance: METFORMIN HYDROCHLORIDE
  139. LIDOCAINE HYDROCHLORIDE [Concomitant]
     Active Substance: LIDOCAINE HYDROCHLORIDE
  140. ASCORBIC ACID\ASPIRIN [Concomitant]
     Active Substance: ASCORBIC ACID\ASPIRIN

REACTIONS (53)
  - Headache [Not Recovered/Not Resolved]
  - Arterial occlusive disease [Not Recovered/Not Resolved]
  - Gastrointestinal disorder [Not Recovered/Not Resolved]
  - Nausea [Not Recovered/Not Resolved]
  - Blood pressure increased [Not Recovered/Not Resolved]
  - Chest discomfort [Not Recovered/Not Resolved]
  - Asthenia [Not Recovered/Not Resolved]
  - Palpitations [Not Recovered/Not Resolved]
  - Gangrene [Not Recovered/Not Resolved]
  - Angina pectoris [Not Recovered/Not Resolved]
  - Sinusitis [Not Recovered/Not Resolved]
  - Cataract [Not Recovered/Not Resolved]
  - Rheumatoid arthritis [Not Recovered/Not Resolved]
  - Arthritis [Not Recovered/Not Resolved]
  - Fatigue [Not Recovered/Not Resolved]
  - Affect lability [Not Recovered/Not Resolved]
  - Carotid artery thrombosis [Not Recovered/Not Resolved]
  - Coordination abnormal [Not Recovered/Not Resolved]
  - Cystitis [Not Recovered/Not Resolved]
  - Dysarthria [Not Recovered/Not Resolved]
  - Eating disorder [Not Recovered/Not Resolved]
  - Fall [Not Recovered/Not Resolved]
  - Hemiparesis [Not Recovered/Not Resolved]
  - Hemiplegia [Not Recovered/Not Resolved]
  - Influenza [Not Recovered/Not Resolved]
  - Influenza like illness [Not Recovered/Not Resolved]
  - Motor dysfunction [Not Recovered/Not Resolved]
  - Muscle spasticity [Not Recovered/Not Resolved]
  - Muscular weakness [Not Recovered/Not Resolved]
  - Neurologic neglect syndrome [Not Recovered/Not Resolved]
  - Pain [Not Recovered/Not Resolved]
  - Personality disorder [Not Recovered/Not Resolved]
  - Pneumonia [Not Recovered/Not Resolved]
  - Psoriasis [Not Recovered/Not Resolved]
  - Respiratory tract congestion [Not Recovered/Not Resolved]
  - Rhinorrhoea [Not Recovered/Not Resolved]
  - Sensory loss [Not Recovered/Not Resolved]
  - Sinus congestion [Not Recovered/Not Resolved]
  - Sinus disorder [Not Recovered/Not Resolved]
  - Skin exfoliation [Not Recovered/Not Resolved]
  - Skin haemorrhage [Not Recovered/Not Resolved]
  - Sneezing [Not Recovered/Not Resolved]
  - Dysphagia [Not Recovered/Not Resolved]
  - Malaise [Not Recovered/Not Resolved]
  - Nasopharyngitis [Not Recovered/Not Resolved]
  - Pyrexia [Not Recovered/Not Resolved]
  - Anxiety [Not Recovered/Not Resolved]
  - Cerebrovascular accident [Not Recovered/Not Resolved]
  - Confusional state [Not Recovered/Not Resolved]
  - Cough [Not Recovered/Not Resolved]
  - Vomiting [Not Recovered/Not Resolved]
  - Aphasia [Not Recovered/Not Resolved]
  - Adjustment disorder [Not Recovered/Not Resolved]
